FAERS Safety Report 7227662-8 (Version None)
Quarter: 2011Q1

REPORT INFORMATION
  Report Type: 
  Country: None (occurrence: None)
  Receive Date: 20110111
  Receipt Date: 20110111
  Transmission Date: 20110831
  Serious: Yes (Hospitalization)
  Sender: FDA-Public Use
  Company Number: None

PATIENT
  Sex: Male
  Weight: 70.7611 kg

DRUGS (14)
  1. AMBIEN [Concomitant]
  2. AMYLASE-LIPASE-PROTEASE [Concomitant]
  3. CELEBREX [Concomitant]
  4. LEXAPRO [Concomitant]
  5. PRILOSEC OTC [Concomitant]
  6. LISINOPRIL [Concomitant]
  7. SPIRIVA [Concomitant]
  8. SORAFENIB 200MG [Suspect]
     Indication: PANCREATIC CARCINOMA
     Dosage: 2 TABLETS QD, PO
     Route: 048
     Dates: start: 20101217, end: 20101229
  9. OXYCONTIN [Concomitant]
  10. MULTI-VITAMINS [Concomitant]
  11. ALPRAZOLEM [Concomitant]
  12. ERLOTINIB 150 MG [Suspect]
     Indication: PANCREATIC CARCINOMA
     Dosage: 1 TABLET QD, PO
     Route: 048
     Dates: start: 20101217, end: 20101229
  13. OXYCODONE HCL [Concomitant]
  14. ATENOLOL [Concomitant]

REACTIONS (1)
  - APPENDICITIS [None]
